FAERS Safety Report 9714415 (Version 1)
Quarter: 2013Q4

REPORT INFORMATION
  Report Type: Spontaneous
  Country: US (occurrence: US)
  Receive Date: 20131126
  Receipt Date: 20131126
  Transmission Date: 20140711
  Serious: No
  Sender: FDA-Public Use
  Company Number: US-BIOGENIDEC-2013BI073112

PATIENT
  Age: 42 Year
  Sex: Female
  Weight: 93 kg

DRUGS (8)
  1. TECFIDERA [Suspect]
     Indication: PRODUCT USED FOR UNKNOWN INDICATION
     Route: 048
  2. AMPYRA [Concomitant]
     Indication: MULTIPLE SCLEROSIS
     Route: 048
     Dates: start: 201203
  3. VITAMIN D [Concomitant]
  4. OXYBUTYNIN [Concomitant]
  5. CLEOCIN [Concomitant]
  6. AMANTADINE [Concomitant]
  7. ARICEPT [Concomitant]
  8. WELLBUTRIN [Concomitant]

REACTIONS (2)
  - Faeces discoloured [Unknown]
  - Sensitivity of teeth [Not Recovered/Not Resolved]
